FAERS Safety Report 6536848-7 (Version None)
Quarter: 2010Q1

REPORT INFORMATION
  Report Type: 
  Country: None (occurrence: None)
  Receive Date: 20100107
  Receipt Date: 20091223
  Transmission Date: 20100710
  Serious: Yes (Death, Hospitalization, Other)
  Sender: FDA-Public Use
  Company Number: A-US2009-23929

PATIENT
  Age: 68 Year
  Sex: Female

DRUGS (18)
  1. TRACLEER [Suspect]
     Indication: PULMONARY ARTERIAL HYPERTENSION
     Dosage: 125 MG, BID, ORAL 62.5 MG, BID, ORAL
     Route: 048
     Dates: start: 20090210, end: 20090309
  2. TRACLEER [Suspect]
     Indication: PULMONARY ARTERIAL HYPERTENSION
     Dosage: 125 MG, BID, ORAL 62.5 MG, BID, ORAL
     Route: 048
     Dates: start: 20090310, end: 20090616
  3. VENTAVIS [Concomitant]
  4. PROZAC [Concomitant]
  5. LASIX [Concomitant]
  6. SYNTHROID [Concomitant]
  7. ZANTAC 150 [Concomitant]
  8. POTASSIUM CHLORIDE [Concomitant]
  9. ALDACTONE [Concomitant]
  10. NOLVADEX [Concomitant]
  11. COLACE (DOCUSATE SODIUM) [Concomitant]
  12. METOLAZONE [Concomitant]
  13. XANAX [Concomitant]
  14. MILK OF MAGNESIA TAB [Concomitant]
  15. OMEPRAZOLE [Concomitant]
  16. DARVOCET-N 100 [Concomitant]
  17. TRAZODONE HCL [Concomitant]
  18. OXYGEN (OXYGEN) [Concomitant]

REACTIONS (18)
  - ANAEMIA [None]
  - BACK PAIN [None]
  - CARDIAC FAILURE CONGESTIVE [None]
  - DIARRHOEA [None]
  - DISEASE PROGRESSION [None]
  - EPISTAXIS [None]
  - HEPATIC CIRRHOSIS [None]
  - HEPATIC CONGESTION [None]
  - HEPATIC ENCEPHALOPATHY [None]
  - HEPATIC FAILURE [None]
  - HEPATOTOXICITY [None]
  - HYPONATRAEMIA [None]
  - IRON OVERLOAD [None]
  - LOCALISED OEDEMA [None]
  - OEDEMA [None]
  - PLATELET FUNCTION TEST ABNORMAL [None]
  - PULMONARY ARTERIAL HYPERTENSION [None]
  - RIGHT VENTRICULAR FAILURE [None]
